FAERS Safety Report 7343295-7 (Version None)
Quarter: 2011Q1

REPORT INFORMATION
  Report Type: 
  Country: None (occurrence: None)
  Receive Date: 20110308
  Receipt Date: 20110308
  Transmission Date: 20110831
  Serious: Yes (Life-Threatening, Hospitalization)
  Sender: FDA-Public Use
  Company Number: None

PATIENT
  Age: 73 Year
  Sex: Male
  Weight: 90 kg

DRUGS (2)
  1. ASPIRIN [Suspect]
     Indication: DIABETES MELLITUS
     Dosage: 325 MG EVERY DAY PO
     Route: 048
     Dates: end: 20101224
  2. MELOXICAM [Suspect]
     Dosage: 7.5 MG EVERY DAY PO
     Route: 048
     Dates: start: 20040616, end: 20101224

REACTIONS (1)
  - HAEMORRHAGE [None]
